FAERS Safety Report 8260872-X (Version None)
Quarter: 2012Q2

REPORT INFORMATION
  Report Type: 
  Country: None (occurrence: None)
  Receive Date: 20120405
  Receipt Date: 20120323
  Transmission Date: 20120825
  Serious: Yes (Hospitalization)
  Sender: FDA-Public Use
  Company Number: RU-AMGEN-RUSSP2012020919

PATIENT
  Sex: Male
  Weight: 2.689 kg

DRUGS (3)
  1. NPLATE [Suspect]
     Dosage: 1 MUG/KG, UNK
     Route: 064
     Dates: start: 20110201, end: 20111201
  2. IRON [Concomitant]
     Route: 064
  3. PREDNISOLONE [Concomitant]
     Dosage: 40 MG, QD
     Route: 064
     Dates: start: 20120301

REACTIONS (1)
  - THROMBOCYTOPENIA [None]
